FAERS Safety Report 9120030 (Version 2)
Quarter: 2013Q1

REPORT INFORMATION
  Report Type: Spontaneous
  Country: US (occurrence: US)
  Receive Date: 20130226
  Receipt Date: 20130312
  Transmission Date: 20140127
  Serious: Yes (Life-Threatening, Hospitalization)
  Sender: FDA-Public Use
  Company Number: US-AMGEN-USASP2013011748

PATIENT
  Age: 61 Year
  Sex: Female

DRUGS (11)
  1. XGEVA [Suspect]
     Indication: METASTASES TO BONE
     Dosage: 120 MG, QMO
  2. AMLODIPINE [Concomitant]
  3. ASPIRIN [Concomitant]
  4. LEVOTHYROXINE [Concomitant]
  5. METOPROLOL [Concomitant]
  6. CALCIUM CARBONATE [Concomitant]
  7. CALCITRIOL [Concomitant]
  8. ANASTROZOLE [Concomitant]
  9. OXYCODONE [Concomitant]
  10. GLIPIZIDE [Concomitant]
  11. ATORVASTATIN [Concomitant]

REACTIONS (2)
  - Renal failure acute [Unknown]
  - Hypocalcaemia [Unknown]
